FAERS Safety Report 23405790 (Version 1)
Quarter: 2024Q1

REPORT INFORMATION
  Report Type: Spontaneous
  Country: US (occurrence: None)
  Receive Date: 20240114
  Receipt Date: 20240114
  Transmission Date: 20240410
  Serious: No
  Sender: FDA-Public Use
  Company Number: None

PATIENT

DRUGS (1)
  1. ACCUTANE [Suspect]
     Active Substance: ISOTRETINOIN

REACTIONS (5)
  - Product dispensing error [None]
  - Transcription medication error [None]
  - Product communication issue [None]
  - Product dispensing error [None]
  - Intercepted product dispensing error [None]
